FAERS Safety Report 25858825 (Version 3)
Quarter: 2025Q4

REPORT INFORMATION
  Report Type: Spontaneous
  Country: US (occurrence: US)
  Receive Date: 20250929
  Receipt Date: 20251112
  Transmission Date: 20260118
  Serious: Yes (Other)
  Sender: PFIZER
  Company Number: US-PFIZER INC-202500019414

PATIENT
  Age: 67 Year
  Sex: Female
  Weight: 117.46 kg

DRUGS (5)
  1. BOSULIF [Interacting]
     Active Substance: BOSUTINIB MONOHYDRATE
     Indication: Renal cancer
     Dosage: 300 MG, 1X/DAY (TAKE 3 TABLETS ONCE DAILY WITH FOOD)
     Route: 048
  2. BOSULIF [Interacting]
     Active Substance: BOSUTINIB MONOHYDRATE
     Dosage: 100 MG, 1X/DAY
  3. BOSULIF [Interacting]
     Active Substance: BOSUTINIB MONOHYDRATE
     Dosage: 2 TABLETS BY MOUTH ONCE DAILY WITH FOOD
     Route: 048
  4. SPIRONOLACTONE [Interacting]
     Active Substance: SPIRONOLACTONE
     Dosage: UNK
  5. BREO ELLIPTA [Interacting]
     Active Substance: FLUTICASONE FUROATE\VILANTEROL TRIFENATATE
     Dosage: INHALER

REACTIONS (4)
  - Drug interaction [Unknown]
  - Atrial fibrillation [Unknown]
  - Eye operation [Unknown]
  - Off label use [Unknown]

NARRATIVE: CASE EVENT DATE: 20250901
